FAERS Safety Report 5310605-1 (Version None)
Quarter: 2007Q1

REPORT INFORMATION
  Report Type: 
  Country: None (occurrence: None)
  Receive Date: 20070201
  Receipt Date: 20061102
  Transmission Date: 20070707
  Serious: No
  Sender: FDA-Public Use
  Company Number: 258433

PATIENT
  Age: 70 Year
  Sex: Female
  Weight: 82.5 kg

DRUGS (2)
  1. LEVEMIR [Suspect]
     Indication: INSULIN-REQUIRING TYPE II DIABETES MELLITUS
     Dosage: SLIDING SCALE, SUBCUTANEOUS
     Route: 058
     Dates: start: 20060601
  2. LASIX [Concomitant]

REACTIONS (2)
  - PRURITUS [None]
  - RASH [None]
